FAERS Safety Report 8198288-7 (Version None)
Quarter: 2012Q1

REPORT INFORMATION
  Report Type: 
  Country: None (occurrence: None)
  Receive Date: 20120309
  Receipt Date: 20120305
  Transmission Date: 20120608
  Serious: Yes (Other)
  Sender: FDA-Public Use
  Company Number: ES-MERCK-1203ESP00008

PATIENT
  Age: 49 Year
  Sex: Female

DRUGS (2)
  1. SINGULAIR [Suspect]
     Indication: DYSPNOEA
     Route: 048
     Dates: start: 20100602, end: 20111201
  2. SINGULAIR [Suspect]
     Route: 048
     Dates: start: 20111130, end: 20111130

REACTIONS (2)
  - SUICIDE ATTEMPT [None]
  - INTENTIONAL OVERDOSE [None]
